FAERS Safety Report 7578724-7 (Version None)
Quarter: 2011Q2

REPORT INFORMATION
  Report Type: 
  Country: None (occurrence: None)
  Receive Date: 20110628
  Receipt Date: 20110615
  Transmission Date: 20111010
  Serious: Yes (Other)
  Sender: FDA-Public Use
  Company Number: FR-JNJFOC-20090701913

PATIENT
  Sex: Female
  Weight: 56 kg

DRUGS (9)
  1. REMICADE [Suspect]
     Indication: CROHN'S DISEASE
     Route: 042
     Dates: start: 20090106
  2. REMICADE [Suspect]
     Route: 042
     Dates: start: 20090304
  3. REMICADE [Suspect]
     Route: 042
     Dates: start: 20100324
  4. SPASFON [Concomitant]
     Indication: PAIN
  5. REMICADE [Suspect]
     Route: 042
     Dates: start: 20090429
  6. REMICADE [Suspect]
     Dosage: 9 WEEKS PREGNANT
     Route: 042
     Dates: start: 20090806
  7. REMICADE [Suspect]
     Dosage: 3 WEEKS PREGNANT
     Route: 042
     Dates: start: 20090624
  8. REMICADE [Suspect]
     Dosage: 15 WEEKS PREGNANT
     Route: 042
     Dates: start: 20090916
  9. REMICADE [Suspect]
     Dosage: 21 WEEKS PREGNANT
     Route: 042
     Dates: start: 20091028

REACTIONS (2)
  - DRUG EXPOSURE DURING PREGNANCY [None]
  - OVARIAN CYST [None]
